FAERS Safety Report 14713800 (Version 1)
Quarter: 2018Q2

REPORT INFORMATION
  Report Type: Spontaneous
  Country: US (occurrence: US)
  Receive Date: 20180404
  Receipt Date: 20180404
  Transmission Date: 20180711
  Serious: Yes (Other)
  Sender: FDA-Public Use
  Company Number: US-B.I. PHARMACEUTICALS,INC./RIDGEFIELD-2018-BI-018091

PATIENT
  Age: 76 Year
  Sex: Male

DRUGS (1)
  1. PRADAXA [Suspect]
     Active Substance: DABIGATRAN ETEXILATE MESYLATE
     Indication: ATRIAL FIBRILLATION
     Route: 048
     Dates: start: 2010

REACTIONS (5)
  - Cardioversion [Recovered/Resolved]
  - Heart rate irregular [Recovered/Resolved]
  - Atrial thrombosis [Recovered/Resolved]
  - Transient ischaemic attack [Recovered/Resolved]
  - Laser brain ablation [Recovered/Resolved]

NARRATIVE: CASE EVENT DATE: 2012
